FAERS Safety Report 8073553-2 (Version None)
Quarter: 2012Q1

REPORT INFORMATION
  Report Type: 
  Country: None (occurrence: None)
  Receive Date: 20120120
  Receipt Date: 20120110
  Transmission Date: 20120608
  Serious: Yes (Hospitalization, Other)
  Sender: FDA-Public Use
  Company Number: DSJ-2011-21358

PATIENT
  Age: 58 Year
  Sex: Male

DRUGS (6)
  1. ATENOLOL [Concomitant]
  2. ROSUVASTATIN [Concomitant]
  3. AMLODIPINE BESYLATE AND OLMESARTAN MEDOXOMIL [Suspect]
     Indication: HYPERTENSION
     Dosage: 40/5 MG (1 IN 1 D), PER ORAL, 20/2.5 MG (1 IN 1 D), PER ORAL, 20/5 MG (1 IN 1 D), PER ORAL
     Route: 048
     Dates: start: 20110918, end: 20111101
  4. AMLODIPINE BESYLATE AND OLMESARTAN MEDOXOMIL [Suspect]
     Indication: HYPERTENSION
     Dosage: 40/5 MG (1 IN 1 D), PER ORAL, 20/2.5 MG (1 IN 1 D), PER ORAL, 20/5 MG (1 IN 1 D), PER ORAL
     Route: 048
     Dates: start: 20111101, end: 20120102
  5. AMLODIPINE BESYLATE AND OLMESARTAN MEDOXOMIL [Suspect]
     Indication: HYPERTENSION
     Dosage: 40/5 MG (1 IN 1 D), PER ORAL, 20/2.5 MG (1 IN 1 D), PER ORAL, 20/5 MG (1 IN 1 D), PER ORAL
     Route: 048
     Dates: start: 20110901, end: 20110917
  6. ACETYLSALICYLIC ACID SRT [Concomitant]

REACTIONS (1)
  - HYPOTENSION [None]
